FAERS Safety Report 7415063-9 (Version None)
Quarter: 2011Q2

REPORT INFORMATION
  Report Type: 
  Country: None (occurrence: None)
  Receive Date: 20110414
  Receipt Date: 20110406
  Transmission Date: 20111010
  Serious: Yes (Other)
  Sender: FDA-Public Use
  Company Number: US-ROCHE-769875

PATIENT
  Age: 78 Year
  Sex: Female

DRUGS (1)
  1. TAMIFLU [Suspect]
     Dosage: FORM:GELCAP
     Route: 065
     Dates: start: 20110117

REACTIONS (1)
  - CONVULSION [None]
